FAERS Safety Report 24291145 (Version 1)
Quarter: 2024Q3

REPORT INFORMATION
  Report Type: Spontaneous
  Country: US (occurrence: None)
  Receive Date: 20240905
  Receipt Date: 20240905
  Transmission Date: 20241016
  Serious: Yes (Hospitalization)
  Sender: Public
  Company Number: None

PATIENT
  Age: 55 Year
  Sex: Female

DRUGS (1)
  1. PROCRIT [Suspect]
     Active Substance: ERYTHROPOIETIN
     Indication: Anaemia
     Dosage: OTHER STRENGTH : 10000 U/ML;?OTHER QUANTITY : 10000 UNITS;?FREQUENCY : MONTHLY;?

REACTIONS (2)
  - Liver transplant [None]
  - Renal transplant [None]

NARRATIVE: CASE EVENT DATE: 20240830
